FAERS Safety Report 6970417-X (Version None)
Quarter: 2010Q3

REPORT INFORMATION
  Report Type: 
  Country: None (occurrence: None)
  Receive Date: 20100903
  Receipt Date: 20100824
  Transmission Date: 20110219
  Serious: Yes (Death)
  Sender: FDA-Public Use
  Company Number: 2010MA002217

PATIENT
  Age: 25 Year
  Sex: Female

DRUGS (10)
  1. FLUOXETINE [Suspect]
     Dosage: PO
     Route: 048
     Dates: start: 20081209, end: 20081209
  2. IBUPROFEN [Suspect]
     Dosage: PO
     Route: 048
     Dates: start: 20081209, end: 20081209
  3. OXAZEPAM CAPSULES USP, 30 MG (PUREPAC) (OXAZEPAM) [Suspect]
     Dosage: PO
     Route: 048
     Dates: start: 20081209, end: 20081209
  4. TEMAZEPAM [Suspect]
     Dosage: PO
     Route: 048
     Dates: start: 20081209, end: 20081209
  5. CIPRALEX (NO PREF. NAME) [Suspect]
     Indication: DEPRESSION
     Dosage: 220 MG; PO
     Route: 048
     Dates: start: 20080909, end: 20080909
  6. ALCOHOL (ETHANOL) [Suspect]
     Dosage: PO
     Route: 048
     Dates: start: 20081209, end: 20081209
  7. PROZAC [Suspect]
  8. CIPRALEX (NO PREF. NAME) [Suspect]
     Dosage: PO
     Route: 048
     Dates: start: 20080301, end: 20080701
  9. NORTRIPTYLINE HCL [Suspect]
     Dosage: PO
     Route: 048
     Dates: start: 20081209, end: 20081209
  10. CIPRALEX (NO PREF. NAME) [Suspect]
     Indication: ANXIETY
     Dosage: PO
     Route: 048
     Dates: start: 20081203, end: 20081209

REACTIONS (3)
  - COMPLETED SUICIDE [None]
  - DRUG TOXICITY [None]
  - MULTIPLE DRUG OVERDOSE INTENTIONAL [None]
